FAERS Safety Report 5756305-5 (Version None)
Quarter: 2008Q2

REPORT INFORMATION
  Report Type: 
  Country: None (occurrence: None)
  Receive Date: 20080528
  Receipt Date: 20080528
  Transmission Date: 20081010
  Serious: No
  Sender: FDA-Public Use
  Company Number: None

PATIENT

DRUGS (2)
  1. LUNESTA [Suspect]
  2. ADDERALL XR  ALL  SHIRE [Suspect]

REACTIONS (1)
  - MEDICATION ERROR [None]
